FAERS Safety Report 7610254-6 (Version None)
Quarter: 2011Q3

REPORT INFORMATION
  Report Type: 
  Country: None (occurrence: None)
  Receive Date: 20110706
  Receipt Date: 20110623
  Transmission Date: 20111222
  Serious: Yes (Other)
  Sender: FDA-Public Use
  Company Number: 2011SP021439

PATIENT
  Age: 82 Year
  Sex: Male
  Weight: 61.2 kg

DRUGS (13)
  1. ROPIVACAINE HYDROCHLORIDE [Suspect]
     Indication: GENERAL ANAESTHESIA
     Dosage: ED
     Route: 005
     Dates: start: 20110511, end: 20110511
  2. NEO-SYNESIN (PHENYLEPHRINE HYDROCHLORIDE (PHENYLEPHRINE HYDROCHLORIDE) [Suspect]
     Indication: PRODUCT USED FOR UNKNOWN INDICATION
     Dosage: 0.1 MG, IV
     Route: 042
     Dates: start: 20110511, end: 20110511
  3. FENTANYL [Suspect]
     Indication: GENERAL ANAESTHESIA
     Dosage: 0.1 MG, IV
     Route: 042
     Dates: start: 20110511, end: 20110511
  4. SHOUKI  (LALUGHING GAS) (NITROUS OXIDE) [Suspect]
     Indication: GENERAL ANAESTHESIA
     Dosage: 1.5 L INH
     Route: 055
     Dates: start: 20110511, end: 20110511
  5. SEVOFLURANE [Suspect]
     Indication: INDUCTION OF ANAESTHESIA
     Dosage: 1.5 PCT, INH
     Route: 055
     Dates: start: 20110511, end: 20110511
  6. SEVOFLURANE [Suspect]
     Indication: MAINTENANCE OF ANAESTHESIA
     Dosage: 1.5 PCT, INH
     Route: 055
     Dates: start: 20110511, end: 20110511
  7. LASIX [Suspect]
     Indication: PRODUCT USED FOR UNKNOWN INDICATION
     Dosage: 5. 10 MG, IV
     Route: 042
     Dates: start: 20110511, end: 20110511
  8. ROCURONIUM BROMIDE [Suspect]
     Indication: NEUROMUSCULAR BLOCKING THERAPY
     Dosage: 50,25 MG, IV
     Route: 042
     Dates: start: 20110511, end: 20110511
  9. EPHEDRIN (EPHEDRINE HYDROCHLORIDE) [Suspect]
     Indication: PRODUCT USED FOR UNKNOWN INDICATION
     Dosage: 10 MG, 20 MG, BID, IV
     Route: 042
     Dates: start: 20110511, end: 20110511
  10. HEPARIN [Suspect]
     Indication: PRODUCT USED FOR UNKNOWN INDICATION
     Dosage: 4500 IU, IV
     Route: 042
     Dates: start: 20110511, end: 20110511
  11. SUGAMMADEX SODIUM [Suspect]
     Indication: NEUROMUSCULAR BLOCKADE REVERSAL
     Dosage: 200 MG, IV
     Route: 042
     Dates: start: 20110511, end: 20110511
  12. MIDAZOLAM (MIDAZOLAM /00634101/) [Suspect]
     Indication: GENERAL ANAESTHESIA
     Dosage: 2 MG, IV
     Route: 042
     Dates: start: 20110511, end: 20110511
  13. PROTAMINE SULFATE [Suspect]
     Indication: PRODUCT USED FOR UNKNOWN INDICATION
     Dosage: 40 MG, IV
     Route: 042
     Dates: start: 20110511, end: 20110511

REACTIONS (5)
  - UNRESPONSIVE TO STIMULI [None]
  - RESPIRATORY ARREST [None]
  - INCORRECT DOSE ADMINISTERED [None]
  - MUSCULAR WEAKNESS [None]
  - RECURRENCE OF NEUROMUSCULAR BLOCKADE [None]
